FAERS Safety Report 4822840-7 (Version None)
Quarter: 2005Q4

REPORT INFORMATION
  Report Type: 
  Country: None (occurrence: None)
  Receive Date: 20051108
  Receipt Date: 20050627
  Transmission Date: 20060501
  Serious: Yes (Hospitalization)
  Sender: FDA-Public Use
  Company Number: US-SANOFI-SYNTHELABO-F01200501114

PATIENT
  Sex: Female

DRUGS (7)
  1. OXALIPLATIN [Suspect]
     Indication: RECTAL CANCER
     Route: 042
     Dates: start: 20050406, end: 20050406
  2. CAPECITABINE [Suspect]
     Route: 048
  3. BEVACIZUMAB [Suspect]
     Route: 042
     Dates: start: 20050406, end: 20050406
  4. TOPROL-XL [Concomitant]
  5. DEMADEX [Concomitant]
  6. DARVOCET [Concomitant]
  7. INDERAL [Concomitant]

REACTIONS (5)
  - ANGINA PECTORIS [None]
  - HYPERTENSION [None]
  - HYPOKALAEMIA [None]
  - MUSCLE CONTRACTIONS INVOLUNTARY [None]
  - WHITE BLOOD CELL COUNT INCREASED [None]
